FAERS Safety Report 16489481 (Version 1)
Quarter: 2019Q2

REPORT INFORMATION
  Report Type: Spontaneous
  Country: US (occurrence: US)
  Receive Date: 20190628
  Receipt Date: 20190628
  Transmission Date: 20190711
  Serious: No
  Sender: FDA-Public Use
  Company Number: US-GALDERMA-US19018514

PATIENT
  Age: 16 Year
  Sex: Female

DRUGS (7)
  1. PROACTIV GREEN TEA MOISTURIZER [Concomitant]
     Active Substance: COSMETICS
     Indication: ACNE CYSTIC
     Route: 061
     Dates: start: 20190309, end: 20190309
  2. PROACTIV MD DAILY OIL CONTROL SPF 30 [Suspect]
     Active Substance: AVOBENZONE\OCTISALATE\OCTOCRYLENE
     Indication: ACNE CYSTIC
     Route: 061
     Dates: start: 20190309, end: 20190309
  3. MULTIVITAMINS [Concomitant]
     Active Substance: VITAMINS
     Route: 065
  4. PROACTIV REDNESS RELIEF SERUM [Concomitant]
     Indication: ACNE CYSTIC
     Route: 065
     Dates: start: 20190309, end: 20190309
  5. PROACTIV DEEP CLEANSING WASH [Concomitant]
     Active Substance: SALICYLIC ACID
     Indication: ACNE CYSTIC
     Route: 061
     Dates: start: 20190309, end: 20190309
  6. PROACTIV MD ADAPALENE ACNE TREATMENT [Suspect]
     Active Substance: ADAPALENE
     Indication: ACNE CYSTIC
     Dosage: 0.1%
     Route: 061
     Dates: start: 20190309, end: 20190309
  7. PROACTIV MD DEEP CLEANSING FACE WASH [Concomitant]
     Active Substance: COSMETICS
     Indication: ACNE CYSTIC
     Route: 061
     Dates: start: 20190309, end: 20190309

REACTIONS (3)
  - Acne [Recovered/Resolved]
  - Skin burning sensation [Recovered/Resolved]
  - Skin irritation [Recovered/Resolved]

NARRATIVE: CASE EVENT DATE: 20190309
